FAERS Safety Report 8577219-1 (Version None)
Quarter: 2012Q3

REPORT INFORMATION
  Report Type: 
  Country: None (occurrence: None)
  Receive Date: 20120807
  Receipt Date: 20120730
  Transmission Date: 20120928
  Serious: Yes (Hospitalization, Other)
  Sender: FDA-Public Use
  Company Number: US-VERTEX PHARMACEUTICALS INC.-AE-2012-009013

PATIENT
  Sex: Male

DRUGS (4)
  1. PEGASYS [Concomitant]
     Indication: HEPATITIS C
     Dates: start: 20120315
  2. RIBAVIRIN [Concomitant]
     Dates: start: 20120701
  3. RIBAVIRIN [Concomitant]
     Indication: HEPATITIS C
     Dates: start: 20120315, end: 20120608
  4. INCIVEK [Suspect]
     Indication: HEPATITIS C
     Route: 048
     Dates: start: 20120315, end: 20120607

REACTIONS (9)
  - URINARY TRACT INFECTION [None]
  - DEHYDRATION [None]
  - ANAEMIA [None]
  - VOMITING [None]
  - DIARRHOEA [None]
  - ABDOMINAL MASS [None]
  - CHOLELITHIASIS [None]
  - NAUSEA [None]
  - WEIGHT DECREASED [None]
